FAERS Safety Report 5025032-4 (Version None)
Quarter: 2006Q2

REPORT INFORMATION
  Report Type: 
  Country: None (occurrence: None)
  Receive Date: 20060607
  Receipt Date: 20060519
  Transmission Date: 20061013
  Serious: Yes (Hospitalization)
  Sender: FDA-Public Use
  Company Number: US200605004362

PATIENT
  Age: 71 Year
  Sex: Male
  Weight: 127.4 kg

DRUGS (3)
  1. HUMALOG PEN [Suspect]
     Indication: DIABETES MELLITUS
     Dosage: 15 U, 3/D;  15 U, 3/D;  23U 3/D;  20 U 3/D
     Dates: start: 20060101
  2. HUMALOG PEN [Suspect]
     Indication: DIABETES MELLITUS
     Dosage: 15 U, 3/D;  15 U, 3/D;  23U 3/D;  20 U 3/D
     Dates: start: 20060101
  3. LANTUS [Concomitant]

REACTIONS (12)
  - ABASIA [None]
  - ARTHRITIS [None]
  - BLOOD GLUCOSE INCREASED [None]
  - CATARACT [None]
  - CONDITION AGGRAVATED [None]
  - CORONARY ARTERY SURGERY [None]
  - EXERCISE TOLERANCE DECREASED [None]
  - FLUID RETENTION [None]
  - MEMORY IMPAIRMENT [None]
  - PHARMACEUTICAL PRODUCT COMPLAINT [None]
  - WEIGHT INCREASED [None]
  - WRONG TECHNIQUE IN DRUG USAGE PROCESS [None]
